FAERS Safety Report 7533896 (Version 3)
Quarter: 2020Q3

REPORT INFORMATION
  Report Type: Report from Study
  Country: IN (occurrence: IN)
  Receive Date: 20100809
  Receipt Date: 20100820
  Transmission Date: 20201105
  Serious: Yes (Hospitalization)
  Sender: FDA-Public Use
  Company Number: IN-WYE-H16624010

PATIENT
  Age: 55 Year
  Sex: Female
  Weight: 63 kg

DRUGS (7)
  1. LOSARTAN POTASSIUM. [Concomitant]
     Active Substance: LOSARTAN POTASSIUM
     Dosage: ^50 OD^
     Route: 065
  2. IBUPROFEN. [Concomitant]
     Active Substance: IBUPROFEN
     Indication: PAIN
     Dosage: NOT PROVIDED
     Route: 065
     Dates: start: 20100726, end: 20100802
  3. NERATINIB [Suspect]
     Active Substance: NERATINIB
     Indication: BREAST CANCER
     Route: 048
     Dates: start: 20100712, end: 20100802
  4. SPARFLOXACIN [Concomitant]
     Active Substance: SPARFLOXACIN
     Indication: RASH PUSTULAR
     Route: 065
     Dates: start: 20100726, end: 20100802
  5. PACLITAXEL. [Suspect]
     Active Substance: PACLITAXEL
     Indication: BREAST CANCER
     Route: 042
     Dates: start: 20100712, end: 20100802
  6. NERATINIB [Suspect]
     Active Substance: NERATINIB
     Dosage: NOT PROVIDED
     Route: 065
     Dates: start: 20100806
  7. PARACETAMOL [Concomitant]
     Active Substance: ACETAMINOPHEN
     Indication: PAIN
     Dosage: NOT PROVIDED
     Route: 065
     Dates: start: 20100726, end: 20100802

REACTIONS (2)
  - Staphylococcal infection [Recovered/Resolved]
  - Rash pustular [Recovered/Resolved]

NARRATIVE: CASE EVENT DATE: 20100802
